FAERS Safety Report 10089638 (Version 2)
Quarter: 2014Q2

REPORT INFORMATION
  Report Type: Spontaneous
  Country: US (occurrence: US)
  Receive Date: 20140421
  Receipt Date: 20140421
  Transmission Date: 20141212
  Serious: Yes (Other)
  Sender: FDA-Public Use
  Company Number: US-PFIZER INC-2014106627

PATIENT
  Age: 71 Year
  Sex: Male
  Weight: 59 kg

DRUGS (1)
  1. CELEBREX [Suspect]
     Indication: ARTHRITIS
     Dosage: UNK
     Dates: start: 20140201, end: 20140410

REACTIONS (4)
  - Pancytopenia [Recovering/Resolving]
  - Gastrointestinal ulcer [Recovering/Resolving]
  - Protein total decreased [Recovering/Resolving]
  - Abdominal discomfort [Recovering/Resolving]
